FAERS Safety Report 8468200-1 (Version None)
Quarter: 2012Q2

REPORT INFORMATION
  Report Type: 
  Country: None (occurrence: None)
  Receive Date: 20120626
  Receipt Date: 20120615
  Transmission Date: 20120825
  Serious: Yes (Hospitalization)
  Sender: FDA-Public Use
  Company Number: CA-ROCHE-1079318

PATIENT
  Sex: Female
  Weight: 62.198 kg

DRUGS (6)
  1. VEMURAFENIB [Suspect]
     Indication: METASTATIC MALIGNANT MELANOMA
     Route: 048
  2. METOPROLOL TARTRATE [Concomitant]
  3. CANDESARTAN [Concomitant]
  4. PANTOPRAZOLE [Concomitant]
  5. CLOPIDOGREL [Concomitant]
  6. HYDROCHLOROTHIAZIDE [Concomitant]

REACTIONS (2)
  - EATING DISORDER [None]
  - DYSPHAGIA [None]
